FAERS Safety Report 9124094 (Version 1)
Quarter: 2013Q1

REPORT INFORMATION
  Report Type: Spontaneous
  Country: ES (occurrence: IN)
  Receive Date: 20130227
  Receipt Date: 20130227
  Transmission Date: 20140127
  Serious: Yes (Other)
  Sender: FDA-Public Use
  Company Number: IN-PFIZER INC-2013069260

PATIENT
  Age: 28 Year
  Sex: Male

DRUGS (2)
  1. PHENYTOIN [Suspect]
     Indication: GRAND MAL CONVULSION
     Dosage: 300MG PER DAY
  2. TEGRETOL [Concomitant]
     Indication: GRAND MAL CONVULSION
     Dosage: 800 MG PER DAY

REACTIONS (2)
  - Ophthalmoplegia [Recovered/Resolved]
  - Areflexia [Unknown]
